FAERS Safety Report 20300141 (Version 1)
Quarter: 2022Q1

REPORT INFORMATION
  Report Type: Spontaneous
  Country: US (occurrence: None)
  Receive Date: 20220105
  Receipt Date: 20220105
  Transmission Date: 20220423
  Serious: No
  Sender: FDA-Public Use
  Company Number: None

PATIENT
  Age: 44 Year
  Sex: Female

DRUGS (1)
  1. CAPECITABINE [Suspect]
     Active Substance: CAPECITABINE
     Indication: Breast cancer
     Dosage: OTHER QUANTITY : 2000MG, 2500MG INI;?FREQUENCY : TWICE A DAY;?
     Route: 048
     Dates: start: 202004

REACTIONS (5)
  - Therapeutic product effect incomplete [None]
  - Metastasis [None]
  - Chest pain [None]
  - Breast operation [None]
  - Chest wall operation [None]

NARRATIVE: CASE EVENT DATE: 20211201
